FAERS Safety Report 4907488-8 (Version None)
Quarter: 2006Q1

REPORT INFORMATION
  Report Type: 
  Country: None (occurrence: None)
  Receive Date: 20060208
  Receipt Date: 20060125
  Transmission Date: 20060701
  Serious: Yes (Hospitalization, Disabling)
  Sender: FDA-Public Use
  Company Number: 2005-131861-NL

PATIENT
  Age: 41 Year
  Sex: Female

DRUGS (1)
  1. NUVARING [Suspect]
     Indication: CONTRACEPTION
     Dosage: DF
     Route: 067
     Dates: start: 20040101, end: 20050817

REACTIONS (14)
  - ADNEXA UTERI PAIN [None]
  - BETA HAEMOLYTIC STREPTOCOCCAL INFECTION [None]
  - GENERAL PHYSICAL HEALTH DETERIORATION [None]
  - HYPOKALAEMIA [None]
  - PERITONEAL DISORDER [None]
  - PERITONEAL HAEMORRHAGE [None]
  - PHARYNGOLARYNGEAL PAIN [None]
  - PLEURAL EFFUSION [None]
  - SALPINGITIS [None]
  - STAPHYLOCOCCAL SEPSIS [None]
  - STREPTOCOCCAL SEPSIS [None]
  - UTERINE HAEMORRHAGE [None]
  - UTERINE PAIN [None]
  - VAGINAL HAEMORRHAGE [None]
